FAERS Safety Report 5283766-0 (Version None)
Quarter: 2007Q1

REPORT INFORMATION
  Report Type: 
  Country: None (occurrence: None)
  Receive Date: 20061226
  Receipt Date: 20060213
  Transmission Date: 20070707
  Serious: Yes (Other)
  Sender: FDA-Public Use
  Company Number: WAES 0602USA04082

PATIENT
  Age: 65 Year
  Sex: Male

DRUGS (4)
  1. ZETIA [Suspect]
     Indication: HYPERCHOLESTEROLAEMIA
     Dosage: PO
     Route: 048
     Dates: start: 20050213
  2. ECOTRIN [Concomitant]
  3. LASIX [Concomitant]
  4. [THERAPY UNSPECIFIED] [Concomitant]

REACTIONS (1)
  - SWELLING FACE [None]
